FAERS Safety Report 10949799 (Version 1)
Quarter: 2015Q1

REPORT INFORMATION
  Report Type: Spontaneous
  Country: US (occurrence: US)
  Receive Date: 20150324
  Receipt Date: 20150324
  Transmission Date: 20150721
  Serious: No
  Sender: FDA-Public Use
  Company Number: US-ELI_LILLY_AND_COMPANY-US201503003751

PATIENT
  Age: 74 Year
  Sex: Female
  Weight: 57.1 kg

DRUGS (3)
  1. ADCIRCA [Suspect]
     Active Substance: TADALAFIL
     Indication: PRODUCT USED FOR UNKNOWN INDICATION
     Dosage: UNK, UNKNOWN
     Route: 065
  2. TYVASO [Interacting]
     Active Substance: TREPROSTINIL
     Indication: PULMONARY HYPERTENSION
     Dosage: 18 UG, QID
     Route: 055
     Dates: start: 20131030
  3. TYVASO [Interacting]
     Active Substance: TREPROSTINIL
     Dosage: 54 UG, QID
     Route: 055
     Dates: start: 20131030

REACTIONS (3)
  - Epistaxis [Unknown]
  - Nasopharyngitis [Unknown]
  - Drug interaction [Unknown]

NARRATIVE: CASE EVENT DATE: 201404
